FAERS Safety Report 4383388-X (Version None)
Quarter: 2004Q2

REPORT INFORMATION
  Report Type: 
  Country: None (occurrence: None)
  Receive Date: 20040623
  Receipt Date: 20040615
  Transmission Date: 20050107
  Serious: Yes (Hospitalization)
  Sender: FDA-Public Use
  Company Number: PHNR2004AU01057

PATIENT
  Age: 69 Year
  Sex: Female

DRUGS (1)
  1. TEGRETOL [Suspect]
     Indication: PAIN
     Dosage: 200 MG, QD
     Dates: start: 20020801, end: 20020901

REACTIONS (7)
  - ALANINE AMINOTRANSFERASE INCREASED [None]
  - DIABETES MELLITUS [None]
  - GAMMA-GLUTAMYLTRANSFERASE INCREASED [None]
  - HEPATIC FUNCTION ABNORMAL [None]
  - NAUSEA [None]
  - PYREXIA [None]
  - VOMITING [None]
